FAERS Safety Report 15706938 (Version 1)
Quarter: 2018Q4

REPORT INFORMATION
  Report Type: Report from Study
  Country: US (occurrence: US)
  Receive Date: 20181210
  Receipt Date: 20181210
  Transmission Date: 20190205
  Serious: Yes (Hospitalization, Other)
  Sender: FDA-Public Use
  Company Number: US-GILEAD-2018-0379407

PATIENT
  Age: 25 Year
  Sex: Female

DRUGS (3)
  1. AZTREONAM LYSINE [Suspect]
     Active Substance: AZTREONAM LYSINE
     Indication: CYSTIC FIBROSIS
     Dosage: 75 MG, TID ALTERNATING MONTHS WITH INHALED TOBI
     Route: 055
     Dates: start: 20180202
  2. TOBI [Concomitant]
     Active Substance: TOBRAMYCIN
     Route: 055
  3. PULMOZYME [Concomitant]
     Active Substance: DORNASE ALFA

REACTIONS (2)
  - Mechanical ventilation [Not Recovered/Not Resolved]
  - Dyspnoea [Not Recovered/Not Resolved]
